FAERS Safety Report 17075799 (Version 7)
Quarter: 2021Q2

REPORT INFORMATION
  Report Type: Spontaneous
  Country: US (occurrence: US)
  Receive Date: 20191126
  Receipt Date: 20210609
  Transmission Date: 20210716
  Serious: Yes (Other)
  Sender: FDA-Public Use
  Company Number: US-PFIZER INC-2019510220

PATIENT
  Age: 66 Year
  Sex: Female

DRUGS (6)
  1. SKELAXIN [Suspect]
     Active Substance: METAXALONE
     Indication: FIBROMYALGIA
  2. SKELAXIN [Suspect]
     Active Substance: METAXALONE
     Indication: PAIN
  3. SKELAXIN [Suspect]
     Active Substance: METAXALONE
     Indication: MUSCLE SPASMS
     Dosage: 800 MG, 3X/DAY (AS NEEDED)
     Route: 048
     Dates: start: 20200928
  4. FLECTOR EP [Concomitant]
     Active Substance: DICLOFENAC EPOLAMINE
     Dosage: 1 PATCH (180 MG) ON FOR 12 TO 16 HOURS OFF FOR 8 TO 12 HOURS AS NEEDED
     Route: 062
  5. SKELAXIN [Suspect]
     Active Substance: METAXALONE
     Indication: BACK PAIN
     Dosage: 800 MG, 3X/DAY (AS NEEDED)
     Route: 048
  6. LEVOTHYROXINE. [Concomitant]
     Active Substance: LEVOTHYROXINE
     Indication: NEUROPATHY PERIPHERAL
     Dosage: 75 UG, 1X/DAY
     Route: 048

REACTIONS (3)
  - Asthma [Unknown]
  - Autoimmune thyroiditis [Unknown]
  - Colitis ulcerative [Unknown]
